FAERS Safety Report 5692742-5 (Version None)
Quarter: 2008Q2

REPORT INFORMATION
  Report Type: 
  Country: None (occurrence: None)
  Receive Date: 20080402
  Receipt Date: 20080324
  Transmission Date: 20081010
  Serious: No
  Sender: FDA-Public Use
  Company Number: US-BAXTER-2008BH002754

PATIENT
  Age: 14 Year
  Sex: Male

DRUGS (6)
  1. SUPRANE [Suspect]
     Indication: GENERAL ANAESTHESIA
     Route: 055
  2. VERSED [Concomitant]
     Indication: ANAESTHESIA
     Dosage: DOSE UNIT:UNKNOWN
     Route: 065
  3. FENTANYL [Concomitant]
     Indication: ANAESTHESIA
     Dosage: DOSE UNIT:UNKNOWN
     Route: 065
  4. PENTOTHAL [Concomitant]
     Indication: ANAESTHESIA
     Dosage: DOSE UNIT:UNKNOWN
     Route: 065
  5. NITROUS OXIDE [Concomitant]
     Indication: ANAESTHESIA
     Dosage: DOSE UNIT:UNKNOWN
     Route: 065
  6. ROCURONIUM BROMIDE [Concomitant]
     Indication: NEUROMUSCULAR BLOCKADE

REACTIONS (3)
  - RASH [None]
  - TACHYARRHYTHMIA [None]
  - TACHYCARDIA [None]
